FAERS Safety Report 12400362 (Version 2)
Quarter: 2016Q2

REPORT INFORMATION
  Report Type: Spontaneous
  Country: DE (occurrence: DE)
  Receive Date: 20160525
  Receipt Date: 20160528
  Transmission Date: 20160815
  Serious: Yes (Other)
  Sender: FDA-Public Use
  Company Number: DE-009507513-1605DEU010457

PATIENT
  Age: 66 Year
  Sex: Male

DRUGS (4)
  1. TRUSOPT [Suspect]
     Active Substance: DORZOLAMIDE HYDROCHLORIDE
     Dosage: UNK, TID
     Route: 047
     Dates: end: 20160517
  2. CLONID-OPHTAL [Concomitant]
     Dosage: UNK, 2 TIMES DAILY
     Route: 047
  3. DUOTRAV [Concomitant]
     Active Substance: TIMOLOL MALEATE\TRAVOPROST
     Dosage: UNK, 1 TIME IN MORNINGS
  4. TRUSOPT [Suspect]
     Active Substance: DORZOLAMIDE HYDROCHLORIDE
     Indication: INTRAOCULAR PRESSURE TEST ABNORMAL
     Dosage: UNK, TID; STRENGTH: 20 MG/ML
     Route: 047
     Dates: start: 2000

REACTIONS (4)
  - Dizziness [Recovered/Resolved]
  - Cataract operation [Unknown]
  - Cataract operation [Unknown]
  - Feeling abnormal [Recovered/Resolved]

NARRATIVE: CASE EVENT DATE: 201601
